FAERS Safety Report 9380543 (Version 1)
Quarter: 2013Q2

REPORT INFORMATION
  Report Type: Spontaneous
  Country: TN (occurrence: None)
  Receive Date: 20130628
  Receipt Date: 20130628
  Transmission Date: 20140414
  Serious: Yes (Other)
  Sender: FDA-Public Use
  Company Number: 2013P1010024

PATIENT
  Sex: Female

DRUGS (1)
  1. PHENOBARBITAL [Suspect]

REACTIONS (1)
  - Drug reaction with eosinophilia and systemic symptoms [None]
